FAERS Safety Report 5225835-7 (Version None)
Quarter: 2007Q1

REPORT INFORMATION
  Report Type: 
  Country: None (occurrence: None)
  Receive Date: 20070131
  Receipt Date: 20070131
  Transmission Date: 20070707
  Serious: Yes (Hospitalization)
  Sender: FDA-Public Use
  Company Number: None

PATIENT
  Age: 50 Year
  Sex: Female
  Weight: 61.23 kg

DRUGS (7)
  1. TRIZIVIR [Suspect]
     Indication: HIV INFECTION
     Dosage: 1 TAB BID PO
     Route: 048
     Dates: start: 20060801, end: 20070121
  2. REYATAZ [Suspect]
     Indication: HIV INFECTION
     Dosage: 2 TAB -300MG-
     Route: 048
     Dates: start: 20060801, end: 20070121
  3. KALETRA [Concomitant]
  4. SUSTIVA [Concomitant]
  5. POTASSIUM SUPPLEMENTS [Concomitant]
  6. TRILEPTAL [Concomitant]
  7. VIREAD [Suspect]

REACTIONS (3)
  - ASTHENIA [None]
  - DIZZINESS [None]
  - HAEMOGLOBIN DECREASED [None]
